FAERS Safety Report 16647228 (Version 1)
Quarter: 2019Q3

REPORT INFORMATION
  Report Type: Report from Study
  Country: US (occurrence: US)
  Receive Date: 20190730
  Receipt Date: 20190730
  Transmission Date: 20191004
  Serious: Yes (Other)
  Sender: FDA-Public Use
  Company Number: US-JNJFOC-20180800227

PATIENT
  Age: 84 Year
  Sex: Male

DRUGS (8)
  1. IMBRUVICA [Suspect]
     Active Substance: IBRUTINIB
     Dosage: 420 MG, QD
     Route: 048
     Dates: start: 20180720
  2. ADVIL [Suspect]
     Active Substance: IBUPROFEN
     Indication: POST HERPETIC NEURALGIA
     Dosage: UNK
     Route: 065
  3. LATANOPROST. [Concomitant]
     Active Substance: LATANOPROST
  4. STADOL [Concomitant]
     Active Substance: BUTORPHANOL TARTRATE
  5. AMITRIPTYLINE HCL [Concomitant]
     Active Substance: AMITRIPTYLINE
  6. LOSARTAN POTASSIUM. [Concomitant]
     Active Substance: LOSARTAN POTASSIUM
  7. IMBRUVICA [Suspect]
     Active Substance: IBRUTINIB
     Indication: CHRONIC LYMPHOCYTIC LEUKAEMIA
     Dosage: 420 MG, QD
     Route: 048
     Dates: start: 20180719
  8. ISTALOL [Concomitant]
     Active Substance: TIMOLOL MALEATE

REACTIONS (10)
  - Fatigue [Unknown]
  - Post herpetic neuralgia [Unknown]
  - Increased tendency to bruise [Unknown]
  - Intentional dose omission [Unknown]
  - Platelet count decreased [Unknown]
  - Herpes zoster [Recovered/Resolved]
  - Sedation [Unknown]
  - Dysphemia [Unknown]
  - Contusion [Unknown]
  - Constipation [Unknown]

NARRATIVE: CASE EVENT DATE: 201807
